FAERS Safety Report 25417720 (Version 1)
Quarter: 2025Q2

REPORT INFORMATION
  Report Type: Spontaneous
  Country: US (occurrence: None)
  Receive Date: 20250609
  Receipt Date: 20250609
  Transmission Date: 20250716
  Serious: Yes (Other)
  Sender: FDA-CTU
  Company Number: None

PATIENT
  Age: 66 Year
  Sex: Female
  Weight: 74.7 kg

DRUGS (6)
  1. JOURNAVX [Suspect]
     Active Substance: SUZETRIGINE
     Indication: Surgery
     Dosage: OTHER QUANTITY : 30 TABLET(S);?FREQUENCY : EVERY 12 HOURS;?
     Route: 048
     Dates: start: 20250605, end: 20250605
  2. GABAPENTIN [Concomitant]
     Active Substance: GABAPENTIN
  3. E[INVALID] Omeprazole [Concomitant]
  4. VITAMIN D [Concomitant]
     Active Substance: VITAMIN D NOS
  5. FOLATE SODIUM [Concomitant]
     Active Substance: FOLATE SODIUM
  6. ASPIRIN [Concomitant]
     Active Substance: ASPIRIN

REACTIONS (5)
  - Paraesthesia [None]
  - Burning sensation [None]
  - Peripheral swelling [None]
  - Contusion [None]
  - Nausea [None]

NARRATIVE: CASE EVENT DATE: 20250605
